FAERS Safety Report 9230372 (Version 1)
Quarter: 2013Q2

REPORT INFORMATION
  Report Type: Spontaneous
  Country: SE (occurrence: None)
  Receive Date: 20130411
  Receipt Date: 20130411
  Transmission Date: 20140414
  Serious: Yes (Other)
  Sender: FDA-Public Use
  Company Number: 2013-SE-0009

PATIENT
  Age: 81 Year
  Sex: Male

DRUGS (3)
  1. FENTANYL [Suspect]
     Indication: PRODUCT USED FOR UNKNOWN INDICATION
  2. ADRENALINE [Suspect]
     Indication: PRODUCT USED FOR UNKNOWN INDICATION
  3. MARCAIN [Suspect]
     Indication: PRODUCT USED FOR UNKNOWN INDICATION

REACTIONS (2)
  - Sensory disturbance [None]
  - Neuralgia [None]
